FAERS Safety Report 8906504 (Version 1)
Quarter: 2012Q4

REPORT INFORMATION
  Report Type: Spontaneous
  Country: BR (occurrence: None)
  Receive Date: 20121107
  Receipt Date: 20121107
  Transmission Date: 20130627
  Serious: Yes (Hospitalization)
  Sender: FDA-Public Use
  Company Number: DSU-2012-08629

PATIENT
  Age: 55 Year
  Sex: Female

DRUGS (4)
  1. OLMETEC [Suspect]
     Indication: BLOOD PRESSURE HIGH
     Route: 048
     Dates: start: 20120622
  2. FRONTAL XR [Suspect]
     Route: 048
     Dates: start: 2010, end: 2012
  3. RIVOTRIL (CLONAZEPAM) [Concomitant]
  4. CALCITRAN B12 (CALCIUM GLUCONATE, CALCIUM SACCHARATE, CALCIUM GLUCEPTATE) [Concomitant]

REACTIONS (2)
  - Breast lump removal [None]
  - Alopecia [None]
